FAERS Safety Report 13935640 (Version 1)
Quarter: 2017Q3

REPORT INFORMATION
  Report Type: Spontaneous
  Country: US (occurrence: None)
  Receive Date: 20170904
  Receipt Date: 20170904
  Transmission Date: 20171127
  Serious: Yes (Other)
  Sender: FDA-Public Use
  Company Number: None

PATIENT
  Age: 72 Year
  Sex: Female
  Weight: 59.42 kg

DRUGS (14)
  1. CALCIUM [Concomitant]
     Active Substance: CALCIUM
  2. L-METHYLFOLATE [Concomitant]
     Active Substance: LEVOMEFOLIC ACID
  3. COLACE [Concomitant]
     Active Substance: DOCUSATE SODIUM
  4. REQUIP [Concomitant]
     Active Substance: ROPINIROLE HYDROCHLORIDE
  5. MELATONIN [Concomitant]
     Active Substance: MELATONIN
  6. WELLBUTRIN [Concomitant]
     Active Substance: BUPROPION HYDROCHLORIDE
  7. GABAPENTIN. [Concomitant]
     Active Substance: GABAPENTIN
  8. FISH OIL [Concomitant]
     Active Substance: FISH OIL
  9. MULTIVITAMIN [Concomitant]
     Active Substance: VITAMINS
  10. PRESERVISION ARED 2 [Concomitant]
  11. ASPIRIN 81 MG [Concomitant]
     Active Substance: ASPIRIN
  12. RISPERDAL [Suspect]
     Active Substance: RISPERIDONE
     Indication: ANTIDEPRESSANT THERAPY
     Route: 048
     Dates: start: 20140908, end: 20170104
  13. MIRALAX [Concomitant]
     Active Substance: POLYETHYLENE GLYCOL 3350
  14. VITAMIN D3 [Concomitant]
     Active Substance: CHOLECALCIFEROL

REACTIONS (1)
  - Restless legs syndrome [None]

NARRATIVE: CASE EVENT DATE: 201409
